FAERS Safety Report 16446218 (Version 1)
Quarter: 2019Q2

REPORT INFORMATION
  Report Type: Spontaneous
  Country: HU (occurrence: HU)
  Receive Date: 20190618
  Receipt Date: 20190618
  Transmission Date: 20190711
  Serious: Yes (Death)
  Sender: FDA-Public Use
  Company Number: HU-SYNEX-T201904321

PATIENT
  Age: 2 Day

DRUGS (1)
  1. INOMAX [Suspect]
     Active Substance: NITRIC OXIDE
     Indication: PULMONARY HYPERTENSION
     Dosage: 400 PPM, UNK
     Route: 065
     Dates: start: 20190602

REACTIONS (1)
  - Cardiac arrest neonatal [Fatal]

NARRATIVE: CASE EVENT DATE: 20190602
